FAERS Safety Report 20429122 (Version 30)
Quarter: 2022Q4

REPORT INFORMATION
  Report Type: Report from Study
  Country: UA (occurrence: UA)
  Receive Date: 20220204
  Receipt Date: 20221216
  Transmission Date: 20230112
  Serious: Yes (Death, Hospitalization, Other)
  Sender: FDA-Public Use
  Company Number: UA-ASTELLAS-2022US003897

PATIENT
  Age: 65 Year
  Sex: Male

DRUGS (2)
  1. ENFORTUMAB VEDOTIN [Suspect]
     Active Substance: ENFORTUMAB VEDOTIN
     Indication: Bladder cancer
     Dosage: 1.25 MG/KG, CYCLIC (ON DAYS 1 AND 8, Q3W)
     Route: 042
     Dates: start: 20220112, end: 20220119
  2. PEMBROLIZUMAB [Suspect]
     Active Substance: PEMBROLIZUMAB
     Indication: Bladder cancer
     Dosage: 200 MG, EVERY 3 WEEKS (ON DAY 1 Q3W)
     Route: 042
     Dates: start: 20220112, end: 20220112

REACTIONS (5)
  - Multiple organ dysfunction syndrome [Fatal]
  - Dermatitis bullous [Recovering/Resolving]
  - Dermatitis exfoliative generalised [Recovering/Resolving]
  - Leukopenia [Not Recovered/Not Resolved]
  - Urinary tract obstruction [Recovered/Resolved]

NARRATIVE: CASE EVENT DATE: 20220126
